FAERS Safety Report 9417625 (Version 1)
Quarter: 2013Q3

REPORT INFORMATION
  Report Type: Spontaneous
  Country: US (occurrence: US)
  Receive Date: 20130724
  Receipt Date: 20130724
  Transmission Date: 20140515
  Serious: No
  Sender: FDA-Public Use
  Company Number: US-BAYER-2013-089862

PATIENT
  Sex: Male

DRUGS (3)
  1. ALEVE TABLET [Suspect]
     Indication: ANALGESIC THERAPY
     Dosage: 1 DF, BID
     Route: 048
  2. ALEVE TABLET [Suspect]
     Indication: JOINT INJURY
  3. BAYER ASPIRIN REGIMEN REGULAR 325 MG STRENGTH [Concomitant]

REACTIONS (1)
  - Incorrect drug administration duration [None]
